FAERS Safety Report 5373838-4 (Version None)
Quarter: 2007Q2

REPORT INFORMATION
  Report Type: 
  Country: None (occurrence: None)
  Receive Date: 20070628
  Receipt Date: 20070626
  Transmission Date: 20071010
  Serious: Yes (Death)
  Sender: FDA-Public Use
  Company Number: CN-ASTRAZENECA-2007AP02332

PATIENT
  Age: 60 Year
  Sex: Female

DRUGS (4)
  1. IRESSA [Suspect]
     Indication: LUNG ADENOCARCINOMA
     Route: 048
     Dates: start: 20070329, end: 20070414
  2. CISPLATIN [Suspect]
     Indication: LUNG ADENOCARCINOMA
     Route: 038
     Dates: start: 20070404, end: 20070404
  3. PERINDOPRIL [Suspect]
     Indication: HYPERTENSION
     Route: 048
     Dates: start: 20070319, end: 20070413
  4. UNSPECIFIC HYPOGLYCEMIC AGENT [Concomitant]
     Indication: DIABETES MELLITUS

REACTIONS (1)
  - RENAL FAILURE ACUTE [None]
